FAERS Safety Report 22295513 (Version 2)
Quarter: 2023Q2

REPORT INFORMATION
  Report Type: Spontaneous
  Country: US (occurrence: US)
  Receive Date: 20230508
  Receipt Date: 20230510
  Transmission Date: 20230721
  Serious: Yes (Hospitalization, Other)
  Sender: FDA-Public Use
  Company Number: US-PFIZER INC-202300180076

PATIENT
  Age: 43 Year
  Sex: Male
  Weight: 122.47 kg

DRUGS (3)
  1. VANCOMYCIN HYDROCHLORIDE [Suspect]
     Active Substance: VANCOMYCIN HYDROCHLORIDE
     Dosage: 5 G, DAILY [5G IN A 24 HOUR PERIOD FOR 3 DAYS]
     Dates: start: 2020
  2. VANCOMYCIN HYDROCHLORIDE [Suspect]
     Active Substance: VANCOMYCIN HYDROCHLORIDE
     Dosage: 2.5 G, 2X/DAY [2.5 G OF VANCOMYCIN EVERY 12 HOURS]
     Dates: start: 2020
  3. ZOSYN [Suspect]
     Active Substance: PIPERACILLIN SODIUM\TAZOBACTAM SODIUM
     Dosage: 3.375 G, 4X/DAY [3.375 EVERY 6 HOURS]
     Dates: start: 2020

REACTIONS (11)
  - Acute kidney injury [Unknown]
  - Renal tubular necrosis [Unknown]
  - Product administration error [Unknown]
  - Antibiotic level above therapeutic [Unknown]
  - White blood cell count increased [Unknown]
  - Illness [Unknown]
  - Renal failure [Unknown]
  - Glucose tolerance impaired [Unknown]
  - Vitiligo [Unknown]
  - Hypertension [Unknown]
  - Obesity [Unknown]

NARRATIVE: CASE EVENT DATE: 20200101
